FAERS Safety Report 8197883-9 (Version None)
Quarter: 2012Q1

REPORT INFORMATION
  Report Type: 
  Country: None (occurrence: None)
  Receive Date: 20120309
  Receipt Date: 20120301
  Transmission Date: 20120608
  Serious: Yes (Hospitalization)
  Sender: FDA-Public Use
  Company Number: NZ-B.I. PHARMACEUTICALS,INC./RIDGEFIELD-2011-AU-01034AU

PATIENT
  Sex: Male
  Weight: 89 kg

DRUGS (7)
  1. LOSARTAN POTASSIUM [Concomitant]
  2. FELODUR [Concomitant]
  3. PRADAXA [Suspect]
     Indication: ATRIAL FIBRILLATION
     Dosage: 220 MG
     Route: 048
     Dates: start: 20110720, end: 20110801
  4. DIGOXIN [Concomitant]
  5. SIMVASTATIN [Concomitant]
  6. ALLOPURINOL [Concomitant]
  7. FUROSEMIDE [Concomitant]

REACTIONS (3)
  - RECTAL HAEMORRHAGE [None]
  - CEREBROVASCULAR ACCIDENT [None]
  - ABDOMINAL PAIN [None]
